FAERS Safety Report 9001397 (Version 4)
Quarter: 2013Q4

REPORT INFORMATION
  Report Type: Spontaneous
  Country: US (occurrence: US)
  Receive Date: 20130107
  Receipt Date: 20131203
  Transmission Date: 20140711
  Serious: Yes (Hospitalization, Disabling, Other)
  Sender: FDA-Public Use
  Company Number: US-009507513-1301USA000726

PATIENT
  Sex: Female
  Weight: 70.52 kg

DRUGS (14)
  1. FOSAMAX [Suspect]
     Indication: OSTEOPOROSIS
     Dosage: 10 MG, DAILY
     Route: 048
     Dates: start: 1999, end: 200110
  2. FOSAMAX [Suspect]
     Dosage: 70 MG, ON MONDAYS
     Route: 048
     Dates: start: 200110
  3. ALENDRONATE SODIUM [Suspect]
     Indication: OSTEOPOROSIS
     Dosage: 70 MG, WEEKLY
     Route: 048
     Dates: start: 200802, end: 201006
  4. CALCIUM (UNSPECIFIED) [Concomitant]
     Dosage: 630 MG, TID
     Dates: start: 1980
  5. PREDNISONE [Concomitant]
     Indication: SYSTEMIC LUPUS ERYTHEMATOSUS
     Dosage: 2.5 MG, BID
     Dates: start: 197608
  6. PREDNISONE [Concomitant]
     Indication: RHEUMATOID ARTHRITIS
  7. PREDNISONE [Concomitant]
     Indication: FIBROMYALGIA
  8. AZATHIOPRINE [Concomitant]
     Indication: SYSTEMIC LUPUS ERYTHEMATOSUS
     Dosage: 50 MG, BID
     Dates: start: 2003
  9. AZATHIOPRINE [Concomitant]
     Indication: RHEUMATOID ARTHRITIS
  10. METHOTREXATE [Concomitant]
     Indication: SYSTEMIC LUPUS ERYTHEMATOSUS
     Dosage: 0.125 MG, 4X WEEK/ 7.5-15 MG DAILY
  11. METHOTREXATE [Concomitant]
     Indication: RHEUMATOID ARTHRITIS
  12. CALCIUM (UNSPECIFIED) (+) VITAMIN D (UNSPECIFIED) [Concomitant]
     Indication: OSTEOPOROSIS
  13. CITRACAL [Concomitant]
     Indication: OSTEOPOROSIS
     Dosage: 650 MG, TID
  14. CITRACAL [Concomitant]
     Indication: HYPOVITAMINOSIS

REACTIONS (83)
  - Femur fracture [Recovered/Resolved]
  - Intramedullary rod insertion [Unknown]
  - Osteoporosis [Unknown]
  - Femur fracture [Unknown]
  - Femur fracture [Unknown]
  - Humerus fracture [Unknown]
  - Aortic valve replacement [Unknown]
  - Thyroidectomy [Unknown]
  - Acute prerenal failure [Unknown]
  - Asthenia [Unknown]
  - Ankle fracture [Recovered/Resolved]
  - Upper limb fracture [Unknown]
  - Vitamin D deficiency [Unknown]
  - Tooth extraction [Unknown]
  - Hypertension [Unknown]
  - Upper limb fracture [Unknown]
  - Fall [Unknown]
  - Asthma [Not Recovered/Not Resolved]
  - Osteopenia [Unknown]
  - Joint instability [Unknown]
  - Musculoskeletal disorder [Unknown]
  - Aortic valve incompetence [Unknown]
  - Pulmonary hypertension [Unknown]
  - Restrictive pulmonary disease [Unknown]
  - Dry eye [Unknown]
  - Weight increased [Unknown]
  - Wrist deformity [Unknown]
  - Osteoarthritis [Unknown]
  - Rotator cuff syndrome [Unknown]
  - Kyphosis [Unknown]
  - Periarthritis [Unknown]
  - Oesophageal dilation procedure [Unknown]
  - Aortic valve stenosis [Unknown]
  - Supraventricular tachycardia [Unknown]
  - Tachycardia [Unknown]
  - Face injury [Unknown]
  - Fibromyalgia [Unknown]
  - Sinusitis [Unknown]
  - Aortic valve disease [Unknown]
  - Hypothyroidism [Unknown]
  - Pollakiuria [Unknown]
  - Micturition urgency [Unknown]
  - Cardiac murmur [Unknown]
  - Spinal osteoarthritis [Unknown]
  - Cerebral calcification [Unknown]
  - Cerebrovascular disorder [Unknown]
  - Calcium deficiency [Unknown]
  - Iron deficiency anaemia [Not Recovered/Not Resolved]
  - Kidney infection [Unknown]
  - Depression [Unknown]
  - Hiatus hernia [Unknown]
  - Atrial fibrillation [Recovered/Resolved]
  - Migraine [Unknown]
  - Upper limb fracture [Recovered/Resolved]
  - Blister [Unknown]
  - Skin reaction [Unknown]
  - Post procedural drainage [Unknown]
  - Ecchymosis [Unknown]
  - Skin irritation [Unknown]
  - Impaired healing [Unknown]
  - Ligament sprain [Unknown]
  - Fall [Unknown]
  - Osteoarthritis [Unknown]
  - Metabolic disorder [Unknown]
  - Arachnoid cyst [Unknown]
  - Joint dislocation [Unknown]
  - Facet joint syndrome [Unknown]
  - Intervertebral disc degeneration [Unknown]
  - Intervertebral disc protrusion [Unknown]
  - QRS axis abnormal [Unknown]
  - Electrocardiogram T wave amplitude decreased [Unknown]
  - Paranasal sinus haematoma [Unknown]
  - Wrist surgery [Unknown]
  - Dysphagia [Unknown]
  - Musculoskeletal pain [Unknown]
  - Oesophageal stenosis [Unknown]
  - Constipation [Unknown]
  - Muscle spasms [Unknown]
  - Back pain [Not Recovered/Not Resolved]
  - Oedema peripheral [Unknown]
  - Gastrooesophageal reflux disease [Unknown]
  - Arthralgia [Unknown]
  - Pain in extremity [Unknown]
